FAERS Safety Report 6615268-0 (Version None)
Quarter: 2010Q1

REPORT INFORMATION
  Report Type: 
  Country: None (occurrence: None)
  Receive Date: 20100226
  Receipt Date: 20100217
  Transmission Date: 20100710
  Serious: Yes (Disabling)
  Sender: FDA-Public Use
  Company Number: CIP10000264

PATIENT
  Age: 66 Year
  Sex: Female

DRUGS (7)
  1. ACTONEL [Suspect]
     Dosage: 150 MG MONTHLY, ORAL
     Route: 048
     Dates: start: 20090901
  2. TEGRETOL [Concomitant]
  3. TOPAMAX [Concomitant]
  4. ATENOLOL [Concomitant]
  5. AVAPRO [Concomitant]
  6. PHYSIOTENS (MOXONIDINE) [Concomitant]
  7. LIPITOR [Concomitant]

REACTIONS (6)
  - ANKLE FRACTURE [None]
  - DIARRHOEA [None]
  - FALL [None]
  - GASTROENTERITIS [None]
  - SYNCOPE [None]
  - VOMITING [None]
